FAERS Safety Report 20683869 (Version 6)
Quarter: 2022Q4

REPORT INFORMATION
  Report Type: Spontaneous
  Country: JP (occurrence: JP)
  Receive Date: 20220407
  Receipt Date: 20221127
  Transmission Date: 20230112
  Serious: Yes (Death, Other)
  Sender: FDA-Public Use
  Company Number: JP-ONO-2022JP008357

PATIENT
  Age: 74 Year
  Sex: Female
  Weight: 48.5 kg

DRUGS (42)
  1. OPDIVO [Suspect]
     Active Substance: NIVOLUMAB
     Indication: Gastric cancer
     Dosage: 240 MG
     Route: 041
     Dates: start: 20211101, end: 20211129
  2. OPDIVO [Suspect]
     Active Substance: NIVOLUMAB
  3. ANAMORELIN HYDROCHLORIDE [Suspect]
     Active Substance: ANAMORELIN HYDROCHLORIDE
     Indication: Cachexia
     Dosage: 100 MG, EVERYDAY
     Route: 048
     Dates: start: 20211015, end: 20211125
  4. MIYA-BM [Concomitant]
     Active Substance: CLOSTRIDIUM BUTYRICUM SPORES STRAIN M-55
     Indication: Prophylaxis
     Dosage: 60 MG, EVERYDAY
     Route: 048
     Dates: end: 20211125
  5. CALONAL [Concomitant]
     Active Substance: ACETAMINOPHEN
     Dosage: 1200 MG, EVERYDAY
     Route: 065
     Dates: end: 20211125
  6. CALONAL [Concomitant]
     Active Substance: ACETAMINOPHEN
     Indication: Product used for unknown indication
  7. EDOXABAN TOSYLATE [Concomitant]
     Active Substance: EDOXABAN TOSYLATE
     Dosage: 30 MG, EVERYDAY
     Route: 048
     Dates: end: 20211125
  8. EDOXABAN TOSYLATE [Concomitant]
     Active Substance: EDOXABAN TOSYLATE
     Indication: Product used for unknown indication
  9. CALCIUM CARBONATE\CHOLECALCIFEROL\MAGNESIUM CARBONATE [Concomitant]
     Active Substance: CALCIUM CARBONATE\CHOLECALCIFEROL\MAGNESIUM CARBONATE
     Dosage: 2 DF, EVERYDAY
     Route: 048
     Dates: end: 20211119
  10. CALCIUM CARBONATE\CHOLECALCIFEROL\MAGNESIUM CARBONATE [Concomitant]
     Active Substance: CALCIUM CARBONATE\CHOLECALCIFEROL\MAGNESIUM CARBONATE
     Indication: Product used for unknown indication
  11. OXYCODONE HYDROCHLORIDE [Concomitant]
     Active Substance: OXYCODONE HYDROCHLORIDE
     Dosage: 15 MG, EVERYDAY
     Route: 065
     Dates: end: 20211016
  12. OXYCODONE HYDROCHLORIDE [Concomitant]
     Active Substance: OXYCODONE HYDROCHLORIDE
     Indication: Product used for unknown indication
  13. MAGNESIUM OXIDE [Concomitant]
     Active Substance: MAGNESIUM OXIDE
     Indication: Prophylaxis
     Dosage: 990 MG, EVERYDAY
     Route: 065
     Dates: end: 20211114
  14. POTASSIUM ASPARTATE [Concomitant]
     Active Substance: POTASSIUM ASPARTATE
     Dosage: 900 MG, EVERYDAY
     Route: 065
     Dates: end: 20211017
  15. POTASSIUM ASPARTATE [Concomitant]
     Active Substance: POTASSIUM ASPARTATE
     Indication: Product used for unknown indication
  16. DESYREL [Concomitant]
     Active Substance: TRAZODONE HYDROCHLORIDE
     Dosage: 50 MG, EVERYDAY
     Route: 065
     Dates: end: 20211125
  17. DESYREL [Concomitant]
     Active Substance: TRAZODONE HYDROCHLORIDE
     Indication: Product used for unknown indication
  18. AMINO ACIDS\DEXTROSE\ELECTROLYTES NOS\MINERALS\VITAMINS [Concomitant]
     Active Substance: AMINO ACIDS\DEXTROSE\ELECTROLYTES NOS\MINERALS\VITAMINS
     Dosage: 1000 MILLILITER, EVERYDAY
     Route: 065
     Dates: start: 20211018, end: 20211205
  19. AMINO ACIDS\DEXTROSE\ELECTROLYTES NOS\MINERALS\VITAMINS [Concomitant]
     Active Substance: AMINO ACIDS\DEXTROSE\ELECTROLYTES NOS\MINERALS\VITAMINS
     Indication: Product used for unknown indication
  20. AMINO ACIDS\DEXTROSE\ELECTROLYTES NOS\VITAMINS [Concomitant]
     Active Substance: AMINO ACIDS\DEXTROSE\ELECTROLYTES NOS\VITAMINS
     Dosage: 500 MILLILITER, EVERYDAY
     Route: 065
     Dates: start: 20211018, end: 20211022
  21. AMINO ACIDS\DEXTROSE\ELECTROLYTES NOS\VITAMINS [Concomitant]
     Active Substance: AMINO ACIDS\DEXTROSE\ELECTROLYTES NOS\VITAMINS
     Indication: Product used for unknown indication
  22. RISPERDAL [Concomitant]
     Active Substance: RISPERIDONE
     Dosage: 1 MG/ML, EVERYDAY
     Route: 065
     Dates: start: 20211115, end: 20211125
  23. RISPERDAL [Concomitant]
     Active Substance: RISPERIDONE
     Indication: Product used for unknown indication
  24. FENTANYL [Concomitant]
     Active Substance: FENTANYL
     Dosage: 1 MG, EVERYDAY
     Route: 062
     Dates: start: 20211017, end: 20211020
  25. FENTANYL [Concomitant]
     Active Substance: FENTANYL
     Indication: Product used for unknown indication
     Dosage: 2 MG, EVERYDAY
     Route: 062
     Dates: start: 20211021, end: 20211102
  26. FENTANYL [Concomitant]
     Active Substance: FENTANYL
     Dosage: 4 MG, EVERYDAY
     Route: 062
     Dates: start: 20211103, end: 20211107
  27. FENTANYL [Concomitant]
     Active Substance: FENTANYL
     Dosage: 3 MG, EVERYDAY
     Route: 062
     Dates: start: 20211108, end: 20211125
  28. FENTANYL CITRATE [Concomitant]
     Active Substance: FENTANYL CITRATE
     Indication: Product used for unknown indication
     Dosage: 100 UG, EVERYDAY
     Route: 065
     Dates: start: 20211017, end: 20211125
  29. ZYPREXA [Concomitant]
     Active Substance: OLANZAPINE
     Dosage: 5 MG, EVERYDAY
     Route: 065
     Dates: start: 20211101, end: 20211125
  30. ZYPREXA [Concomitant]
     Active Substance: OLANZAPINE
     Indication: Product used for unknown indication
  31. LENOGRASTIM [Concomitant]
     Active Substance: LENOGRASTIM
     Dosage: 100 UG, EVERYDAY
     Route: 065
     Dates: start: 20211018, end: 20211020
  32. LENOGRASTIM [Concomitant]
     Active Substance: LENOGRASTIM
     Indication: Product used for unknown indication
  33. DENOSUMAB [Concomitant]
     Active Substance: DENOSUMAB
     Dosage: 120 MG, EVERYDAY
     Route: 065
     Dates: start: 20211026, end: 20211026
  34. DENOSUMAB [Concomitant]
     Active Substance: DENOSUMAB
     Indication: Product used for unknown indication
  35. NEXIUM [Concomitant]
     Active Substance: ESOMEPRAZOLE MAGNESIUM
     Indication: Product used for unknown indication
     Dosage: 20 MG, EVERYDAY
     Route: 065
     Dates: end: 20211109
  36. ADALAT CC [Concomitant]
     Active Substance: NIFEDIPINE
     Indication: Product used for unknown indication
     Dosage: 40 MG, EVERYDAY
     Route: 065
     Dates: end: 20211019
  37. MEROPENEM [Concomitant]
     Active Substance: MEROPENEM
     Indication: Product used for unknown indication
     Dosage: 2 G, EVERYDAY
     Route: 065
     Dates: start: 20211017, end: 20211105
  38. OXYCODONE HYDROCHLORIDE [Concomitant]
     Active Substance: OXYCODONE HYDROCHLORIDE
     Indication: Product used for unknown indication
     Dosage: 2.5 MG, EVERYDAY
     Route: 048
  39. URSODIOL [Concomitant]
     Active Substance: URSODIOL
     Indication: Product used for unknown indication
     Dosage: 150 MG, EVERYDAY
     Route: 065
  40. AMLODIPINE [Concomitant]
     Active Substance: AMLODIPINE BESYLATE
     Indication: Product used for unknown indication
     Dosage: 2.5 MG, EVERYDAY
     Route: 048
     Dates: start: 20211020, end: 20211125
  41. APO LANSOPRAZOLE ODT [Concomitant]
     Indication: Product used for unknown indication
     Dosage: 15 MG, EVERYDAY
     Route: 048
     Dates: start: 20211110, end: 20211125
  42. NIMELIDE-FEN [Concomitant]
     Indication: Product used for unknown indication
     Dosage: 100 UG, EVERYDAY
     Route: 065
     Dates: start: 20211017, end: 20211125

REACTIONS (7)
  - Platelet count decreased [Fatal]
  - Aspartate aminotransferase increased [Fatal]
  - Anaemia [Not Recovered/Not Resolved]
  - Hypoalbuminaemia [Recovering/Resolving]
  - Alanine aminotransferase increased [Recovering/Resolving]
  - Disseminated intravascular coagulation [Unknown]
  - Malignant neoplasm progression [Unknown]

NARRATIVE: CASE EVENT DATE: 20211022
